FAERS Safety Report 10307965 (Version 2)
Quarter: 2014Q3

REPORT INFORMATION
  Report Type: Spontaneous
  Country: US (occurrence: US)
  Receive Date: 20140716
  Receipt Date: 20140902
  Transmission Date: 20150326
  Serious: No
  Sender: FDA-Public Use
  Company Number: US-PFIZER INC-2014198238

PATIENT
  Age: 8 Year
  Sex: Male

DRUGS (1)
  1. QUILLIVANT XR [Suspect]
     Active Substance: METHYLPHENIDATE HYDROCHLORIDE
     Indication: ATTENTION DEFICIT/HYPERACTIVITY DISORDER
     Dosage: 40 MG, DAILY
     Route: 048
     Dates: start: 201309, end: 20140714

REACTIONS (2)
  - Muscle twitching [Recovered/Resolved]
  - Product packaging issue [Unknown]

NARRATIVE: CASE EVENT DATE: 20140712
